FAERS Safety Report 24087158 (Version 1)
Quarter: 2024Q3

REPORT INFORMATION
  Report Type: Spontaneous
  Country: GR (occurrence: GR)
  Receive Date: 20240713
  Receipt Date: 20240713
  Transmission Date: 20241017
  Serious: Yes (Other)
  Sender: TEVA
  Company Number: GR-TEVA-VS-3219029

PATIENT
  Age: 78 Year
  Sex: Female

DRUGS (1)
  1. METHOTREXATE [Suspect]
     Active Substance: METHOTREXATE
     Indication: Rheumatoid arthritis
     Route: 065

REACTIONS (10)
  - Acute kidney injury [Unknown]
  - Cheilitis [Unknown]
  - Septic shock [Unknown]
  - Mouth haemorrhage [Unknown]
  - Toxicity to various agents [Unknown]
  - Pseudomonas infection [Unknown]
  - Inflammatory marker increased [Unknown]
  - Gingivitis [Unknown]
  - Hepatic enzyme abnormal [Unknown]
  - Pancytopenia [Unknown]
